FAERS Safety Report 10741773 (Version 1)
Quarter: 2015Q1

REPORT INFORMATION
  Report Type: Spontaneous
  Country: US (occurrence: None)
  Receive Date: 20150123
  Receipt Date: 20150123
  Transmission Date: 20150721
  Serious: Yes (Death)
  Sender: FDA-Public Use
  Company Number: 2015COR00010

PATIENT
  Age: 43 Year
  Sex: Female

DRUGS (2)
  1. CARISOPRODOL. [Suspect]
     Active Substance: CARISOPRODOL
  2. HEROIN [Suspect]
     Active Substance: DIACETYLMORPHINE

REACTIONS (6)
  - Anion gap abnormal [None]
  - Tachycardia [None]
  - Coma [None]
  - Hypotension [None]
  - Depressed level of consciousness [None]
  - Metabolic acidosis [None]
